FAERS Safety Report 14133997 (Version 8)
Quarter: 2020Q4

REPORT INFORMATION
  Report Type: Spontaneous
  Country: US (occurrence: US)
  Receive Date: 20171027
  Receipt Date: 20201217
  Transmission Date: 20210113
  Serious: No
  Sender: FDA-Public Use
  Company Number: US-PFIZER INC-2017465349

PATIENT
  Age: 35 Year
  Sex: Female

DRUGS (2)
  1. SERTRALINE HCL [Suspect]
     Active Substance: SERTRALINE HYDROCHLORIDE
     Indication: MENTAL DISORDER
     Dosage: 300 MG, UNK
  2. SERTRALINE HCL [Suspect]
     Active Substance: SERTRALINE HYDROCHLORIDE
     Dosage: 200 MG, DAILY

REACTIONS (7)
  - Diarrhoea [Unknown]
  - Off label use [Unknown]
  - Vomiting [Unknown]
  - Illness [Unknown]
  - Drug ineffective [Unknown]
  - Overdose [Unknown]
  - Reaction to excipient [Unknown]
